FAERS Safety Report 5887066-7 (Version None)
Quarter: 2008Q3

REPORT INFORMATION
  Report Type: 
  Country: None (occurrence: None)
  Receive Date: 20080915
  Receipt Date: 20080902
  Transmission Date: 20090109
  Serious: Yes (Hospitalization)
  Sender: FDA-Public Use
  Company Number: 2008AL010317

PATIENT
  Age: 15 Year
  Sex: Female

DRUGS (8)
  1. PROMETHAZINE [Suspect]
     Indication: SEDATION
     Dosage: PRN; PO
     Route: 048
  2. PROMETHAZINE HCL [Suspect]
     Indication: SEDATION
     Dosage: PRN; ORAL
     Route: 048
  3. QUETIAPINE FUMARATE [Concomitant]
  4. LORAZEPAM [Concomitant]
  5. HALOPERIDOL [Concomitant]
  6. ZOPICLONE [Concomitant]
  7. ACETAMINOPHEN W/ CODEINE [Concomitant]
  8. CETIRIZINE HCL [Concomitant]

REACTIONS (1)
  - URINARY RETENTION [None]
